FAERS Safety Report 16365516 (Version 1)
Quarter: 2019Q2

REPORT INFORMATION
  Report Type: Spontaneous
  Country: GB (occurrence: GB)
  Receive Date: 20190529
  Receipt Date: 20190529
  Transmission Date: 20190711
  Serious: Yes (Hospitalization)
  Sender: FDA-Public Use
  Company Number: GB-ACCORD-129850

PATIENT
  Age: 83 Year
  Sex: Male

DRUGS (14)
  1. DOCUSATE [Concomitant]
     Active Substance: DOCUSATE
  2. FINASTERIDE. [Concomitant]
     Active Substance: FINASTERIDE
  3. AMLODIPINE [Suspect]
     Active Substance: AMLODIPINE BESYLATE
     Indication: ESSENTIAL HYPERTENSION
     Dosage: IN THE MORNING
     Route: 048
     Dates: start: 20180101, end: 20190326
  4. MEMANTINE/MEMANTINE HYDROCHLORIDE [Concomitant]
  5. RIVAROXABAN [Concomitant]
     Active Substance: RIVAROXABAN
  6. ZOPICLONE [Concomitant]
     Active Substance: ZOPICLONE
  7. RAMIPRIL. [Suspect]
     Active Substance: RAMIPRIL
     Indication: ESSENTIAL HYPERTENSION
     Route: 048
     Dates: start: 20180101, end: 20190326
  8. IRON [Concomitant]
     Active Substance: IRON
  9. MOXONIDINE [Suspect]
     Active Substance: MOXONIDINE
     Indication: ESSENTIAL HYPERTENSION
     Route: 048
     Dates: start: 20180101, end: 20190326
  10. SENNA ALEXANDRINA [Concomitant]
     Active Substance: SENNA LEAF
  11. TEGRETOL XR [Concomitant]
     Active Substance: CARBAMAZEPINE
  12. TRIMETHOPRIM. [Concomitant]
     Active Substance: TRIMETHOPRIM
  13. RANITIDINE. [Concomitant]
     Active Substance: RANITIDINE
  14. SIMVASTATIN. [Concomitant]
     Active Substance: SIMVASTATIN

REACTIONS (2)
  - Orthostatic hypotension [Unknown]
  - Fall [Unknown]

NARRATIVE: CASE EVENT DATE: 20190325
